FAERS Safety Report 8231646-0 (Version None)
Quarter: 2012Q1

REPORT INFORMATION
  Report Type: 
  Country: None (occurrence: None)
  Receive Date: 20120323
  Receipt Date: 20120316
  Transmission Date: 20120608
  Serious: Yes (Hospitalization, Other)
  Sender: FDA-Public Use
  Company Number: TR-UCBSA-053651

PATIENT
  Age: 43 Year
  Sex: Male

DRUGS (2)
  1. KEPPRA [Suspect]
     Dosage: TOOK APPOXIMATELY 21 G
     Dates: start: 20110315
  2. KEPPRA [Suspect]
     Dates: start: 20110312, end: 20110314

REACTIONS (2)
  - OVERDOSE [None]
  - POISONING [None]
